FAERS Safety Report 4600212-8 (Version None)
Quarter: 2005Q1

REPORT INFORMATION
  Report Type: 
  Country: None (occurrence: None)
  Receive Date: 20050303
  Receipt Date: 20050223
  Transmission Date: 20050727
  Serious: No
  Sender: FDA-Public Use
  Company Number: 2005-00682

PATIENT
  Age: 48 Year
  Sex: Female

DRUGS (10)
  1. LISINOPRIL [Suspect]
     Indication: HYPERTENSION
     Dosage: 10 MG, DAILY, ORAL
     Route: 048
     Dates: start: 20040101, end: 20040101
  2. TIZANIDINE HCL [Suspect]
     Indication: DECEREBRATION
     Dosage: 2 MG, SINGLE
     Dates: start: 20040101, end: 20040101
  3. TIZANIDINE HCL [Suspect]
     Indication: HYPERTONIA
     Dosage: 2 MG, SINGLE
     Dates: start: 20040101, end: 20040101
  4. TIZANIDINE HCL [Suspect]
     Indication: MUSCLE RIGIDITY
     Dosage: 2 MG, SINGLE
     Dates: start: 20040101, end: 20040101
  5. AMLODIPINE (AMLODIPINE) [Concomitant]
  6. NIMODIPINE (NIMODIPINE) [Concomitant]
  7. LABETALOL HCL [Concomitant]
  8. OFLOXACIN [Concomitant]
  9. THEOPHYLLINE [Concomitant]
  10. BIOFERMIN (LACTOBACILLUS ACIDOPHILUS, BACILLUS SUBTILIS, STREPTOCOCCUS [Concomitant]

REACTIONS (3)
  - DRUG INTERACTION POTENTIATION [None]
  - HYPOTENSION [None]
  - IDIOSYNCRATIC DRUG REACTION [None]
